FAERS Safety Report 5982929-6 (Version None)
Quarter: 2008Q4

REPORT INFORMATION
  Report Type: 
  Country: None (occurrence: None)
  Receive Date: 20081205
  Receipt Date: 20081205
  Transmission Date: 20090506
  Serious: Yes (Hospitalization)
  Sender: FDA-Public Use
  Company Number: None

PATIENT
  Age: 62 Year
  Sex: Male
  Weight: 79.3795 kg

DRUGS (1)
  1. MIRAPEX [Suspect]
     Indication: RESTLESS LEGS SYNDROME
     Dosage: .125 DAILY X 5-DAYS;  .25 DAILY X 6-10 DAYS PO
     Route: 048
     Dates: start: 20081022, end: 20081028

REACTIONS (8)
  - ABNORMAL BEHAVIOUR [None]
  - AMNESIA [None]
  - CONFUSIONAL STATE [None]
  - EMOTIONAL DISORDER [None]
  - HYPERSENSITIVITY [None]
  - MOOD ALTERED [None]
  - THINKING ABNORMAL [None]
  - VISUAL IMPAIRMENT [None]
